FAERS Safety Report 11754453 (Version 2)
Quarter: 2015Q4

REPORT INFORMATION
  Report Type: Spontaneous
  Country: US (occurrence: US)
  Receive Date: 20151119
  Receipt Date: 20151221
  Transmission Date: 20160304
  Serious: Yes (Other)
  Sender: FDA-Public Use
  Company Number: US-PFIZER INC-2015382130

PATIENT
  Age: 70 Year
  Sex: Female
  Weight: 71.2 kg

DRUGS (3)
  1. GEMFIBROZIL. [Concomitant]
     Active Substance: GEMFIBROZIL
     Indication: BLOOD CHOLESTEROL INCREASED
     Dosage: 600 MG, 2X/DAY
  2. LYRICA [Suspect]
     Active Substance: PREGABALIN
     Indication: NEUROPATHY PERIPHERAL
     Dosage: 50 MG, 1X/DAY (IN THE EVENING OR AT NIGHT)
     Route: 048
     Dates: start: 201510
  3. SUCRALFATE. [Concomitant]
     Active Substance: SUCRALFATE
     Indication: ABDOMINAL DISCOMFORT
     Dosage: 1 G, 2X/DAY

REACTIONS (7)
  - Cognitive disorder [Unknown]
  - Emotional disorder [Unknown]
  - Mental impairment [Unknown]
  - Feeling abnormal [Unknown]
  - Thinking abnormal [Unknown]
  - Anxiety [Unknown]
  - Confusional state [Unknown]
